FAERS Safety Report 16912089 (Version 1)
Quarter: 2019Q4

REPORT INFORMATION
  Report Type: Spontaneous
  Country: US (occurrence: US)
  Receive Date: 20191014
  Receipt Date: 20191014
  Transmission Date: 20200122
  Serious: Yes (Hospitalization)
  Sender: FDA-Public Use
  Company Number: US-UNICHEM PHARMACEUTICALS (USA) INC-UCM201910-000547

PATIENT
  Age: 20 Year
  Sex: Female

DRUGS (1)
  1. LAMOTRIGINE. [Suspect]
     Active Substance: LAMOTRIGINE
     Indication: BIPOLAR I DISORDER
     Dosage: A TYPICAL MAINTENANCE  DOSE IS 100-400 MG PER DAY

REACTIONS (9)
  - Myalgia [Unknown]
  - Back pain [Unknown]
  - Hepatic enzyme increased [Recovering/Resolving]
  - Rash macular [Unknown]
  - Tachycardia [Unknown]
  - Pyrexia [Unknown]
  - Intentional overdose [Unknown]
  - Depressed level of consciousness [Unknown]
  - Blood lactate dehydrogenase increased [Recovering/Resolving]
